FAERS Safety Report 23176826 (Version 1)
Quarter: 2023Q4

REPORT INFORMATION
  Report Type: Spontaneous
  Country: GB (occurrence: GB)
  Receive Date: 20231113
  Receipt Date: 20231113
  Transmission Date: 20240110
  Serious: Yes (Other)
  Sender: FDA-Public Use
  Company Number: None

PATIENT

DRUGS (4)
  1. LANSOPRAZOLE [Suspect]
     Active Substance: LANSOPRAZOLE
     Indication: Lower respiratory tract infection
     Dosage: UNK
     Dates: start: 20231102, end: 20231102
  2. AMOXICILLIN [Suspect]
     Active Substance: AMOXICILLIN
     Indication: Lower respiratory tract infection
     Dosage: UNK
     Dates: start: 20231102, end: 20231102
  3. CLARITHROMYCIN [Suspect]
     Active Substance: CLARITHROMYCIN
     Indication: Lower respiratory tract infection
     Dosage: UNK
     Dates: start: 20231102, end: 20231102
  4. PROPRANOLOL [Concomitant]
     Active Substance: PROPRANOLOL HYDROCHLORIDE
     Indication: Migraine prophylaxis

REACTIONS (6)
  - Pyrexia [Recovering/Resolving]
  - Illness [Unknown]
  - Renal pain [Unknown]
  - Hepatic pain [Unknown]
  - Chills [Unknown]
  - Dysgeusia [Unknown]

NARRATIVE: CASE EVENT DATE: 20231102
